FAERS Safety Report 17062266 (Version 1)
Quarter: 2019Q4

REPORT INFORMATION
  Report Type: Spontaneous
  Country: GB (occurrence: GB)
  Receive Date: 20191122
  Receipt Date: 20191122
  Transmission Date: 20200122
  Serious: Yes (Hospitalization)
  Sender: FDA-Public Use
  Company Number: GB-TEVA-2019-GB-1139571

PATIENT
  Age: 67 Year
  Sex: Male

DRUGS (5)
  1. CLOPIDOGREL [Suspect]
     Active Substance: CLOPIDOGREL BISULFATE
     Indication: TRANSIENT ISCHAEMIC ATTACK
     Dosage: 75 MILLIGRAM
     Route: 048
     Dates: end: 20180723
  2. AMLODIPINE MALEATE [Concomitant]
     Active Substance: AMLODIPINE MALEATE
  3. SIMVASTATIN. [Concomitant]
     Active Substance: SIMVASTATIN
  4. DERMOL [Concomitant]
     Active Substance: BENZALKONIUM CHLORIDE\CHLORHEXIDINE HYDROCHLORIDE\ISOPROPYL MYRISTATE\PARAFFIN
  5. RAMIPRIL. [Concomitant]
     Active Substance: RAMIPRIL

REACTIONS (4)
  - Gastrointestinal haemorrhage [Recovered/Resolved]
  - Melaena [Unknown]
  - Haematemesis [Unknown]
  - Duodenal ulcer haemorrhage [Unknown]

NARRATIVE: CASE EVENT DATE: 20180723
